APPROVED DRUG PRODUCT: HYDROXYZINE PAMOATE
Active Ingredient: HYDROXYZINE PAMOATE
Strength: EQ 25MG HYDROCHLORIDE
Dosage Form/Route: CAPSULE;ORAL
Application: A201507 | Product #001 | TE Code: AB
Applicant: HERITAGE PHARMA LABS INC
Approved: Jun 3, 2013 | RLD: No | RS: No | Type: RX